FAERS Safety Report 15732694 (Version 1)
Quarter: 2018Q4

REPORT INFORMATION
  Report Type: Spontaneous
  Country: US (occurrence: US)
  Receive Date: 20181217
  Receipt Date: 20181217
  Transmission Date: 20190205
  Serious: No
  Sender: FDA-Public Use
  Company Number: US-BAYER-2018-233876

PATIENT
  Age: 33 Year
  Sex: Male
  Weight: 86 kg

DRUGS (1)
  1. LOTRIMIN ULTRA ANTIFUNGAL [Suspect]
     Active Substance: BUTENAFINE HYDROCHLORIDE
     Indication: THERAPEUTIC SKIN CARE TOPICAL
     Dosage: 2 DF, QD
     Route: 061

REACTIONS (2)
  - Drug ineffective [Unknown]
  - Incorrect product administration duration [None]
